FAERS Safety Report 5069050-9 (Version None)
Quarter: 2006Q3

REPORT INFORMATION
  Report Type: 
  Country: None (occurrence: None)
  Receive Date: 20060801
  Receipt Date: 20060801
  Transmission Date: 20061208
  Serious: Yes (Other)
  Sender: FDA-Public Use
  Company Number: None

PATIENT
  Sex: Male
  Weight: 89.4947 kg

DRUGS (1)
  1. GLEEVEC [Suspect]
     Indication: KAPOSI'S SARCOMA
     Dosage: 400 MG   DAILY   PO
     Route: 048
     Dates: start: 20060329, end: 20060726

REACTIONS (1)
  - PAIN IN EXTREMITY [None]
